FAERS Safety Report 24012461 (Version 5)
Quarter: 2025Q3

REPORT INFORMATION
  Report Type: Report from Study
  Country: EU (occurrence: EU)
  Receive Date: 20240625
  Receipt Date: 20250805
  Transmission Date: 20251021
  Serious: Yes (Other)
  Sender: BIOGEN
  Company Number: EU-BIOGEN-2024BI01270844

PATIENT
  Age: 21 Year
  Sex: Male
  Weight: 71 kg

DRUGS (6)
  1. OMAVELOXOLONE [Suspect]
     Active Substance: OMAVELOXOLONE
     Indication: Friedreich^s ataxia
     Dosage: 3 CAPSULES OF 50MG, SINGLE ADMIN
     Route: 050
     Dates: start: 20240329, end: 20240516
  2. OMAVELOXOLONE [Suspect]
     Active Substance: OMAVELOXOLONE
     Route: 050
  3. OMAVELOXOLONE [Suspect]
     Active Substance: OMAVELOXOLONE
     Route: 050
  4. OMAVELOXOLONE [Suspect]
     Active Substance: OMAVELOXOLONE
     Route: 050
  5. LEVOCETIRIZINE DIHYDROCHLORIDE [Concomitant]
     Active Substance: LEVOCETIRIZINE DIHYDROCHLORIDE
     Indication: Product used for unknown indication
     Route: 050
     Dates: start: 20210101
  6. LEVOCARNITINE [Concomitant]
     Active Substance: LEVOCARNITINE
     Indication: Product used for unknown indication
     Dosage: 1G/10ML, FLASK 10ML
     Route: 050
     Dates: start: 20220708

REACTIONS (2)
  - Hepatic cytolysis [Recovered/Resolved]
  - Asthenia [Recovered/Resolved]

NARRATIVE: CASE EVENT DATE: 20240510
